FAERS Safety Report 9439088 (Version 1)
Quarter: 2013Q3

REPORT INFORMATION
  Report Type: Report from Study
  Country: CA (occurrence: CA)
  Receive Date: 20130802
  Receipt Date: 20130802
  Transmission Date: 20140515
  Serious: Yes (Other)
  Sender: FDA-Public Use
  Company Number: CA-ABBOTT-13P-028-1092166-00

PATIENT
  Sex: Female
  Weight: 58.11 kg

DRUGS (13)
  1. HUMIRA [Suspect]
     Indication: CROHN^S DISEASE
     Route: 058
     Dates: start: 20080731, end: 201305
  2. HUMIRA [Suspect]
     Route: 058
     Dates: start: 201307
  3. CHOLESTYRAMINE [Concomitant]
     Indication: BILE OUTPUT INCREASED
     Route: 048
  4. MEDICATION (NOS) [Concomitant]
     Indication: HYPERSENSITIVITY
     Dosage: IF NEEDED
  5. PROLIA [Concomitant]
     Indication: BONE DENSITY ABNORMAL
     Route: 058
  6. IRON [Concomitant]
     Indication: SUPPLEMENTATION THERAPY
     Route: 048
  7. VITAMIN B12 [Concomitant]
     Indication: SUPPLEMENTATION THERAPY
     Route: 048
  8. VITAMIN D NOS [Concomitant]
     Indication: SUPPLEMENTATION THERAPY
     Route: 048
  9. CALCIUM [Concomitant]
     Indication: SUPPLEMENTATION THERAPY
     Route: 048
  10. PREDNISONE [Concomitant]
     Indication: PRODUCT USED FOR UNKNOWN INDICATION
  11. IMURAN [Concomitant]
     Indication: PRODUCT USED FOR UNKNOWN INDICATION
  12. MERCAPTOPURINE [Concomitant]
     Indication: PRODUCT USED FOR UNKNOWN INDICATION
  13. METHOTREXATE [Concomitant]
     Indication: PRODUCT USED FOR UNKNOWN INDICATION

REACTIONS (2)
  - Large intestinal stenosis [Not Recovered/Not Resolved]
  - Small intestinal obstruction [Unknown]
